FAERS Safety Report 16743762 (Version 1)
Quarter: 2019Q3

REPORT INFORMATION
  Report Type: Spontaneous
  Country: US (occurrence: US)
  Receive Date: 20190827
  Receipt Date: 20190827
  Transmission Date: 20191005
  Serious: Yes (Other)
  Sender: FDA-Public Use
  Company Number: US-TEVA-2019-US-1098675

PATIENT
  Age: 72 Year
  Sex: Male

DRUGS (1)
  1. LINEZOLID. [Suspect]
     Active Substance: LINEZOLID
     Indication: SKIN ULCER
     Dosage: ROUTE AND DOSAGE: NOT STATED
     Route: 065

REACTIONS (1)
  - Polyneuropathy [Recovering/Resolving]
